FAERS Safety Report 7723889 (Version 4)
Quarter: 2013Q2

REPORT INFORMATION
  Report Type: Spontaneous
  Country: US (occurrence: US)
  Receive Date: 20101221
  Receipt Date: 20130613
  Transmission Date: 20140414
  Serious: Yes (Hospitalization, Other)
  Sender: FDA-Public Use
  Company Number: US-JNJFOC-20100806907

PATIENT
  Age: 59 Year
  Sex: Female

DRUGS (4)
  1. LEVAQUIN [Suspect]
     Indication: POST PROCEDURAL INFECTION
     Route: 048
     Dates: start: 20041216, end: 20050201
  2. CIPROFLOXACIN [Suspect]
     Indication: POST PROCEDURAL INFECTION
     Route: 065
  3. STEROIDS NOS [Suspect]
     Indication: PRODUCT USED FOR UNKNOWN INDICATION
     Route: 065
  4. NASACORT [Suspect]
     Indication: PRODUCT USED FOR UNKNOWN INDICATION
     Route: 065

REACTIONS (6)
  - Tendon rupture [Unknown]
  - Fibromyalgia [Unknown]
  - Ligament rupture [Unknown]
  - Tendonitis [Unknown]
  - Tenosynovitis [Unknown]
  - Tendon disorder [Unknown]
